FAERS Safety Report 9028702 (Version 1)
Quarter: 2013Q1

REPORT INFORMATION
  Report Type: Spontaneous
  Country: US (occurrence: US)
  Receive Date: 20130124
  Receipt Date: 20130124
  Transmission Date: 20140127
  Serious: Yes (Death)
  Sender: FDA-Public Use
  Company Number: PHEH2013US002111

PATIENT
  Age: 67 Year
  Sex: Female

DRUGS (7)
  1. EXJADE [Suspect]
     Indication: IRON OVERLOAD
     Dosage: 1000 MG, EVERY DAY
     Route: 048
  2. PROTONIX [Concomitant]
     Dosage: 20 MG, UNK
  3. ZOFRAN [Concomitant]
     Dosage: 4 MG, UNK
  4. CLARITIN [Concomitant]
     Dosage: 10 MG, UNK
  5. PERCOCET-5 [Concomitant]
     Dosage: 325 MG, UNK
  6. STOOL SOFTENER [Concomitant]
     Dosage: 100 MG, UNK
  7. TYLENOL [Concomitant]
     Dosage: 325 MG, UNK

REACTIONS (1)
  - Death [Fatal]
